FAERS Safety Report 24154686 (Version 3)
Quarter: 2024Q3

REPORT INFORMATION
  Report Type: Spontaneous
  Country: FR (occurrence: FR)
  Receive Date: 20240731
  Receipt Date: 20240829
  Transmission Date: 20241017
  Serious: Yes (Congenital Anomaly)
  Sender: CIPLA
  Company Number: FR-AFSSAPS-TS2024000829

PATIENT

DRUGS (12)
  1. ESOMEPRAZOLE [Suspect]
     Active Substance: ESOMEPRAZOLE
     Dosage: UNK (MATERNAL DOSE: 20 MILLIGRAM, QD)
     Route: 064
     Dates: start: 20231029
  2. CREON [Suspect]
     Active Substance: PANCRELIPASE AMYLASE\PANCRELIPASE LIPASE\PANCRELIPASE PROTEASE
     Dosage: UNK (MATERNAL DOSE: 15 DOSAGE FORM, QD (25000 U), GASTRO-RESISTANT GRANULES IN CAPSULES)
     Route: 064
     Dates: start: 20231029
  3. ELEXACAFTOR\IVACAFTOR\TEZACAFTOR [Suspect]
     Active Substance: ELEXACAFTOR\IVACAFTOR\TEZACAFTOR
     Dosage: UNK (MATERNAL DOSE: 2 DOSAGE FORM, QD)
     Route: 064
     Dates: start: 20231029
  4. COLISTIMETHATE SODIUM [Suspect]
     Active Substance: COLISTIMETHATE SODIUM
     Dosage: UNK (MATERNAL DOSE: 2 MEGA-INTERNATIONAL UNIT, BID, POWDER FOR SOLUTION FOR INHALATION BY NEBULIZER)
     Route: 064
     Dates: start: 20231029
  5. SINGULAIR [Suspect]
     Active Substance: MONTELUKAST SODIUM
     Dosage: UNK
     Route: 064
     Dates: start: 20240516
  6. INNOVAIR [Suspect]
     Active Substance: BECLOMETHASONE DIPROPIONATE\FORMOTEROL
     Dosage: UNK (MATERNAL DOSE: 2 DOSAGE FORM, BID (12 HOURS) (NEXTHALER) (STRENGTH-200 MICROGRAMMES/6 MICROGRAM
     Route: 064
     Dates: start: 20231029
  7. ALBUTEROL SULFATE [Suspect]
     Active Substance: ALBUTEROL SULFATE
     Dosage: UNK (MATERNAL DOSE: 1 DOSAGE FORM, PRN)
     Route: 064
     Dates: start: 20231029, end: 20240510
  8. CETIRIZINE HYDROCHLORIDE [Suspect]
     Active Substance: CETIRIZINE HYDROCHLORIDE
     Dosage: UNK (MATERNAL DOSE: 20 MILLIGRAM, QD)
     Route: 064
     Dates: start: 20231029
  9. SPIRIVA RESPIMAT [Suspect]
     Active Substance: TIOTROPIUM BROMIDE
     Dosage: UNK (MATERNAL DOSE: 2 DOSAGE FORM, QD)
     Route: 064
     Dates: start: 20231029
  10. KALYDECO [Suspect]
     Active Substance: IVACAFTOR
     Dosage: UNK (MATERNAL DOSE: 1 DOSAGE FORM, QD)
     Route: 064
     Dates: start: 20231029
  11. PANCRELIPASE [Suspect]
     Active Substance: PANCRELIPASE\PANCRELIPASE AMYLASE\PANCRELIPASE LIPASE\PANCRELIPASE PROTEASE
     Dosage: UNK (MATERNAL DOSE: 3 DOSAGE FORM, TID (8 HOURS)
     Route: 064
     Dates: start: 20231029
  12. IPRATROPIUM BROMIDE\FENOTEROL HYDROBROMIDE [Suspect]
     Active Substance: FENOTEROL HYDROBROMIDE\IPRATROPIUM BROMIDE
     Dosage: UNK (MATERNAL DOSE: 1 DOSAGE FORM, TID)
     Route: 064
     Dates: start: 20240516

REACTIONS (3)
  - Amniotic fluid index increased [Not Recovered/Not Resolved]
  - Foetal macrosomia [Not Recovered/Not Resolved]
  - Foetal exposure during pregnancy [Unknown]

NARRATIVE: CASE EVENT DATE: 20231029
